FAERS Safety Report 11430545 (Version 1)
Quarter: 2015Q3

REPORT INFORMATION
  Report Type: Spontaneous
  Country: US (occurrence: US)
  Receive Date: 20150828
  Receipt Date: 20150828
  Transmission Date: 20151125
  Serious: No
  Sender: FDA-Public Use
  Company Number: US-ROCHE-1172257

PATIENT
  Sex: Male

DRUGS (2)
  1. COPEGUS [Suspect]
     Active Substance: RIBAVIRIN
     Indication: HEPATITIS C
     Route: 065
     Dates: start: 20081205, end: 20091030
  2. PEGASYS [Suspect]
     Active Substance: PEGINTERFERON ALFA-2A
     Indication: HEPATITIS C
     Route: 065
     Dates: start: 20081205, end: 20091030

REACTIONS (18)
  - Depression [Unknown]
  - Gastrointestinal pain [Unknown]
  - Colitis [Unknown]
  - Fatigue [Unknown]
  - Rash erythematous [Unknown]
  - Intestinal polyp [Unknown]
  - Diarrhoea [Unknown]
  - Therapeutic response decreased [Unknown]
  - Abdominal adhesions [Unknown]
  - Erythema [Unknown]
  - Cognitive disorder [Unknown]
  - Enteritis [Unknown]
  - Pallor [Unknown]
  - Gastrointestinal disorder [Unknown]
  - Headache [Unknown]
  - Polyp [Unknown]
  - Arthralgia [Unknown]
  - Rash [Unknown]
